FAERS Safety Report 21529458 (Version 1)
Quarter: 2022Q4

REPORT INFORMATION
  Report Type: Spontaneous
  Country: FR (occurrence: FR)
  Receive Date: 20221031
  Receipt Date: 20221031
  Transmission Date: 20230113
  Serious: Yes (Life-Threatening)
  Sender: FDA-Public Use
  Company Number: None

PATIENT
  Age: 47 Year
  Sex: Male
  Weight: 67 kg

DRUGS (6)
  1. BUSULFAN [Suspect]
     Active Substance: BUSULFAN
     Indication: Chronic myelomonocytic leukaemia
     Dosage: UNK
     Route: 042
     Dates: start: 20211214, end: 20211215
  2. BUSULFAN [Suspect]
     Active Substance: BUSULFAN
     Indication: Off label use
  3. CYCLOPHOSPHAMIDE [Suspect]
     Active Substance: CYCLOPHOSPHAMIDE
     Indication: Chronic myelomonocytic leukaemia
     Dosage: UNK
     Route: 042
     Dates: start: 20211216, end: 20211217
  4. CYTARABINE [Suspect]
     Active Substance: CYTARABINE
     Indication: Chronic myelomonocytic leukaemia
     Dosage: UNK
     Route: 042
     Dates: start: 20211209, end: 20211211
  5. FLUDARABINE [Suspect]
     Active Substance: FLUDARABINE PHOSPHATE
     Indication: Chronic myelomonocytic leukaemia
     Dosage: UNK
     Route: 042
     Dates: start: 20211209, end: 20211211
  6. AMSACRINE [Suspect]
     Active Substance: AMSACRINE
     Indication: Chronic myelomonocytic leukaemia
     Dosage: UNK
     Route: 042
     Dates: start: 20211209, end: 20211211

REACTIONS (4)
  - Cardiac failure [Recovered/Resolved]
  - Bone marrow failure [Recovered/Resolved]
  - Product use in unapproved indication [Unknown]
  - Off label use [Unknown]

NARRATIVE: CASE EVENT DATE: 20211218
